FAERS Safety Report 16573174 (Version 2)
Quarter: 2020Q1

REPORT INFORMATION
  Report Type: Report from Study
  Country: None (occurrence: US)
  Receive Date: 20190715
  Receipt Date: 20200102
  Transmission Date: 20200409
  Serious: Yes (Other)
  Sender: FDA-Public Use
  Company Number: US-ABBVIE-19K-163-2850822-00

PATIENT
  Age: 45 Year
  Sex: Female
  Weight: 71.73 kg

DRUGS (2)
  1. HUMIRA [Suspect]
     Active Substance: ADALIMUMAB
     Indication: PSORIASIS
     Route: 058
     Dates: start: 201510, end: 20190515
  2. HUMIRA [Suspect]
     Active Substance: ADALIMUMAB
     Indication: RHEUMATOID ARTHRITIS

REACTIONS (4)
  - Benign salivary gland neoplasm [Unknown]
  - Adenoid cystic carcinoma of salivary gland [Unknown]
  - Adverse event [Unknown]
  - Drug resistance [Unknown]

NARRATIVE: CASE EVENT DATE: 20190625
